FAERS Safety Report 9399415 (Version 2)
Quarter: 2013Q3

REPORT INFORMATION
  Report Type: Spontaneous
  Country: US (occurrence: None)
  Receive Date: 20130709
  Receipt Date: 20130807
  Transmission Date: 20140515
  Serious: Yes (Hospitalization)
  Sender: FDA-Public Use
  Company Number: FK201302363

PATIENT
  Age: 53 Year
  Sex: Female

DRUGS (3)
  1. CYTARABINE [Suspect]
     Indication: ACUTE MYELOID LEUKAEMIA
  2. IDARUBICIN HYDROCHLORIDE [Suspect]
     Indication: ACUTE MYELOID LEUKAEMIA
  3. HYDROXYUREA [Suspect]
     Indication: ACUTE MYELOID LEUKAEMIA

REACTIONS (1)
  - Acute febrile neutrophilic dermatosis [None]
